FAERS Safety Report 9162755 (Version 3)
Quarter: 2013Q2

REPORT INFORMATION
  Report Type: Report from Study
  Country: CA (occurrence: CA)
  Receive Date: 20130314
  Receipt Date: 20130415
  Transmission Date: 20140414
  Serious: Yes (Other)
  Sender: FDA-Public Use
  Company Number: CA-NAPPMUNDI-CAN-2013-0003854

PATIENT
  Sex: Female
  Weight: 52.2 kg

DRUGS (5)
  1. OXYNEO 40 MG [Suspect]
     Indication: INTERVERTEBRAL DISC DEGENERATION
     Dosage: 40 MG, Q12H
     Route: 065
  2. OMEPRAZOLE [Concomitant]
     Indication: DYSPEPSIA
     Dosage: 20 MG, DAILY
     Route: 065
  3. OMEPRAZOLE [Concomitant]
     Indication: DYSPEPSIA
  4. OMEPRAZOLE [Concomitant]
     Indication: GASTRIC ULCER
  5. PILLS FOR CONSTIPATION [Concomitant]
     Indication: CONSTIPATION
     Dosage: UNK
     Route: 065

REACTIONS (7)
  - Peripheral vascular disorder [Not Recovered/Not Resolved]
  - Gastric ulcer [Not Recovered/Not Resolved]
  - Walking disability [Not Recovered/Not Resolved]
  - Drug ineffective [Not Recovered/Not Resolved]
  - Constipation [Not Recovered/Not Resolved]
  - Dyspepsia [Not Recovered/Not Resolved]
  - Abdominal pain upper [Not Recovered/Not Resolved]
